FAERS Safety Report 6223441-9 (Version None)
Quarter: 2009Q2

REPORT INFORMATION
  Report Type: 
  Country: None (occurrence: None)
  Receive Date: 20090611
  Receipt Date: 20090515
  Transmission Date: 20091009
  Serious: Yes (Death, Hospitalization, Other)
  Sender: FDA-Public Use
  Company Number: US-BAXTER-2008BH010994

PATIENT
  Age: 79 Year
  Sex: Female
  Weight: 49 kg

DRUGS (4)
  1. HEPARIN SODIUM INJECTION [Suspect]
     Indication: THROMBOSIS PROPHYLAXIS
     Route: 010
     Dates: start: 20070401, end: 20080401
  2. WARFARIN SODIUM [Concomitant]
     Indication: DRUG USE FOR UNKNOWN INDICATION
     Route: 048
  3. ATENOLOL [Concomitant]
     Indication: DRUG USE FOR UNKNOWN INDICATION
     Route: 048
  4. DIGOXIN [Concomitant]
     Indication: DRUG USE FOR UNKNOWN INDICATION
     Route: 048

REACTIONS (23)
  - ABASIA [None]
  - ABDOMINAL PAIN UPPER [None]
  - ACUTE CORONARY SYNDROME [None]
  - ANAEMIA [None]
  - ASTHENIA [None]
  - CARDIAC ARREST [None]
  - CHILLS [None]
  - COAGULOPATHY [None]
  - CYANOSIS [None]
  - DIARRHOEA [None]
  - DYSPEPSIA [None]
  - DYSSTASIA [None]
  - FATIGUE [None]
  - GASTROINTESTINAL HAEMORRHAGE [None]
  - HYPOTENSION [None]
  - MALAISE [None]
  - MYOCARDIAL INFARCTION [None]
  - NAIL DISCOLOURATION [None]
  - NODAL ARRHYTHMIA [None]
  - PYREXIA [None]
  - UNRESPONSIVE TO STIMULI [None]
  - VENTRICULAR FIBRILLATION [None]
  - WHEEZING [None]
